FAERS Safety Report 23527747 (Version 1)
Quarter: 2024Q1

REPORT INFORMATION
  Report Type: Spontaneous
  Country: US (occurrence: US)
  Receive Date: 20240215
  Receipt Date: 20240215
  Transmission Date: 20240409
  Serious: Yes (Other)
  Sender: FDA-Public Use
  Company Number: US-Appco Pharma LLC-2153257

PATIENT
  Sex: Female

DRUGS (5)
  1. GLYCOPYRROLATE [Suspect]
     Active Substance: GLYCOPYRROLATE
  2. LEVOTHYROXINE [Concomitant]
     Active Substance: LEVOTHYROXINE\LEVOTHYROXINE SODIUM
     Route: 065
  3. ASPIRIN [Concomitant]
     Active Substance: ASPIRIN
     Route: 065
  4. METOPROLOL [Concomitant]
     Active Substance: METOPROLOL
     Route: 065
  5. FLECAINIDE [Concomitant]
     Active Substance: FLECAINIDE
     Route: 065

REACTIONS (19)
  - Hyperhidrosis [Unknown]
  - Loss of consciousness [Unknown]
  - Dehydration [Unknown]
  - Abdominal pain lower [Unknown]
  - Conjunctivitis [Unknown]
  - Vision blurred [Unknown]
  - Odynophagia [Unknown]
  - Pyrexia [Unknown]
  - Heart rate increased [Unknown]
  - Dyspnoea [Unknown]
  - Dizziness [Unknown]
  - Palpitations [Unknown]
  - Hypoaesthesia [Unknown]
  - Tremor [Unknown]
  - Vertigo [Unknown]
  - Headache [Unknown]
  - Nasal congestion [Unknown]
  - Sinus pain [Unknown]
  - Oropharyngeal pain [Unknown]
